FAERS Safety Report 8275624-4 (Version None)
Quarter: 2012Q2

REPORT INFORMATION
  Report Type: 
  Country: None (occurrence: None)
  Receive Date: 20120412
  Receipt Date: 20120402
  Transmission Date: 20120825
  Serious: No
  Sender: FDA-Public Use
  Company Number: US-BIOGENIDEC-2011BI017107

PATIENT
  Sex: Female

DRUGS (4)
  1. ZOLOFT [Concomitant]
     Indication: DEPRESSION
  2. TYSABRI [Suspect]
     Indication: MULTIPLE SCLEROSIS
     Route: 042
     Dates: start: 20110128, end: 20120201
  3. STEROIDS (NOS) [Concomitant]
     Indication: PREMEDICATION
  4. KLONOPIN [Concomitant]
     Indication: INSOMNIA

REACTIONS (13)
  - CHEST DISCOMFORT [None]
  - FATIGUE [None]
  - COGNITIVE DISORDER [None]
  - MOOD SWINGS [None]
  - CONFUSIONAL STATE [None]
  - BLOOD PRESSURE INCREASED [None]
  - DRUG SPECIFIC ANTIBODY PRESENT [None]
  - INSOMNIA [None]
  - TOOTHACHE [None]
  - CHEST PAIN [None]
  - WEIGHT INCREASED [None]
  - CHOLELITHIASIS [None]
  - BACK PAIN [None]
